FAERS Safety Report 16941646 (Version 1)
Quarter: 2019Q4

REPORT INFORMATION
  Report Type: Spontaneous
  Country: US (occurrence: US)
  Receive Date: 20190829
  Receipt Date: 20190829
  Transmission Date: 20200122
  Serious: Yes (Life-Threatening)
  Sender: FDA-Public Use
  Company Number: None

PATIENT
  Age: 96 Year
  Sex: Male

DRUGS (1)
  1. IRON SUCROSE [Suspect]
     Active Substance: IRON SUCROSE
     Indication: ANAEMIA
     Route: 042
     Dates: start: 20190709, end: 20190709

REACTIONS (3)
  - Renal replacement therapy [None]
  - Tachyarrhythmia [None]
  - Angina pectoris [None]

NARRATIVE: CASE EVENT DATE: 20190709
